FAERS Safety Report 4901437-4 (Version None)
Quarter: 2006Q1

REPORT INFORMATION
  Report Type: 
  Country: None (occurrence: None)
  Receive Date: 20060206
  Receipt Date: 20050816
  Transmission Date: 20060701
  Serious: Yes (Other)
  Sender: FDA-Public Use
  Company Number: PHNU2005DE02888

PATIENT
  Sex: Male

DRUGS (3)
  1. ZOMETA [Suspect]
     Indication: MULTIPLE MYELOMA
  2. DEXAMETHASONE TAB [Concomitant]
     Indication: MULTIPLE MYELOMA
     Dosage: 40 MG, TID3SDO
     Route: 048
     Dates: start: 20020801, end: 20021201
  3. DEXAMETHASONE TAB [Concomitant]
     Dosage: 120 MG, TID
     Route: 048
     Dates: start: 20040401, end: 20040501

REACTIONS (1)
  - OSTEONECROSIS [None]
